FAERS Safety Report 19138561 (Version 1)
Quarter: 2021Q2

REPORT INFORMATION
  Report Type: Spontaneous
  Country: DE (occurrence: DE)
  Receive Date: 20210415
  Receipt Date: 20210415
  Transmission Date: 20210717
  Serious: Yes (Hospitalization)
  Sender: FDA-Public Use
  Company Number: DE-TEVA-2021-DE-1899919

PATIENT
  Age: 78 Year
  Sex: Male

DRUGS (4)
  1. PREDNISOLON [Suspect]
     Active Substance: PREDNISOLONE
     Dosage: 30 MILLIGRAM DAILY;  1?0?0?0
     Route: 065
  2. DEKRISTOL 20000I.E. [Concomitant]
     Dosage: UNIT DOSE 1 DOSAGE FORMS ,20,000 IU / WEEK, 1X
  3. PANTOPRAZOL [Concomitant]
     Active Substance: PANTOPRAZOLE SODIUM
     Dosage: 40 MILLIGRAM DAILY;   1?0?0?0
  4. ALLOPURINOL. [Concomitant]
     Active Substance: ALLOPURINOL
     Dosage: 100 MILLIGRAM DAILY;  1?0?0?0

REACTIONS (2)
  - Pyrexia [Unknown]
  - Infection [Unknown]
